FAERS Safety Report 8939672 (Version 1)
Quarter: 2012Q4

REPORT INFORMATION
  Report Type: 
  Country: JP (occurrence: JP)
  Receive Date: 20121130
  Receipt Date: 20121130
  Transmission Date: 20130627
  Serious: Yes (Other)
  Sender: FDA-Public Use
  Company Number: PHHY2012JP109284

PATIENT
  Age: 77 Year
  Sex: Female

DRUGS (2)
  1. VALPROIC ACID [Suspect]
  2. IODINE (131 I) [Suspect]
     Dosage: 3.7 GBq, UNK

REACTIONS (3)
  - Acute respiratory failure [Unknown]
  - Convulsion [Unknown]
  - Laryngeal oedema [Recovering/Resolving]
